FAERS Safety Report 10521749 (Version 7)
Quarter: 2015Q2

REPORT INFORMATION
  Report Type: Spontaneous
  Country: JP (occurrence: None)
  Receive Date: 20141014
  Receipt Date: 20150622
  Transmission Date: 20150821
  Serious: Yes (Life-Threatening, Hospitalization, Other)
  Sender: FDA-Public Use
  Company Number: A201410813

PATIENT
  Age: 64 Year
  Sex: Male

DRUGS (4)
  1. EDURANT [Concomitant]
     Active Substance: RILPIVIRINE HYDROCHLORIDE
  2. ISENTRESS [Concomitant]
     Active Substance: RALTEGRAVIR POTASSIUM
  3. ABACAVIR SULFATE + LAMIVUDINE [Suspect]
     Active Substance: ABACAVIR SULFATE\LAMIVUDINE
     Indication: HIV INFECTION
     Dosage: DF
     Route: 048
     Dates: start: 201212, end: 201501
  4. TIVICAY [Suspect]
     Active Substance: DOLUTEGRAVIR SODIUM
     Indication: HIV INFECTION
     Route: 048
     Dates: start: 201501

REACTIONS (25)
  - Asterixis [None]
  - Sleep apnoea syndrome [None]
  - Autonomic nervous system imbalance [None]
  - Dysstasia [None]
  - Activities of daily living impaired [None]
  - Cerebellar ataxia [None]
  - Orthostatic hypotension [None]
  - Memory impairment [None]
  - Central nervous system infection [None]
  - Pneumonia aspiration [None]
  - Hypotonic urinary bladder [None]
  - Nystagmus [None]
  - AIDS dementia complex [None]
  - Dysphagia [None]
  - Dysuria [None]
  - Ataxia [None]
  - Multiple system atrophy [None]
  - Postural reflex impairment [None]
  - Cerebral hypoperfusion [None]
  - Metabolic disorder [None]
  - Anorectal disorder [None]
  - Gait disturbance [None]
  - Muscle rigidity [None]
  - Mental impairment [None]
  - Cerebellar atrophy [None]

NARRATIVE: CASE EVENT DATE: 20140829
